FAERS Safety Report 6312464-7 (Version None)
Quarter: 2009Q3

REPORT INFORMATION
  Report Type: 
  Country: None (occurrence: None)
  Receive Date: 20090817
  Receipt Date: 20090812
  Transmission Date: 20100115
  Serious: Yes (Death)
  Sender: FDA-Public Use
  Company Number: CI-GILEAD-2009-0023700

PATIENT
  Age: 40 Year
  Sex: Female
  Weight: 49 kg

DRUGS (3)
  1. TRUVADA [Suspect]
     Indication: HIV INFECTION
     Route: 048
     Dates: start: 20090525
  2. STOCRIN [Concomitant]
     Indication: HIV INFECTION
     Dates: start: 20090525
  3. COTRIM [Concomitant]
     Indication: OPPORTUNISTIC INFECTION
     Dates: start: 20090525

REACTIONS (1)
  - DEATH [None]
